FAERS Safety Report 9089195 (Version 1)
Quarter: 2013Q1

REPORT INFORMATION
  Report Type: Spontaneous
  Country: DE (occurrence: DE)
  Receive Date: 20130131
  Receipt Date: 20130131
  Transmission Date: 20140127
  Serious: Yes (Other)
  Sender: FDA-Public Use
  Company Number: GXKR2013DE000752

PATIENT
  Age: 1 Year
  Sex: Male

DRUGS (1)
  1. AMOXICILLIN [Suspect]
     Indication: OTITIS MEDIA
     Dosage: 250 MG, UNK
     Route: 048
     Dates: start: 20111215, end: 20111225

REACTIONS (5)
  - Self injurious behaviour [Unknown]
  - Aggression [Unknown]
  - Anger [Unknown]
  - Screaming [Unknown]
  - Bite [Unknown]
